FAERS Safety Report 14521682 (Version 1)
Quarter: 2018Q1

REPORT INFORMATION
  Report Type: Spontaneous
  Country: US (occurrence: US)
  Receive Date: 20180212
  Receipt Date: 20180212
  Transmission Date: 20180509
  Serious: Yes (Hospitalization, Other)
  Sender: FDA-Public Use
  Company Number: US-MYLANLABS-2018M1008939

PATIENT
  Age: 73 Year
  Sex: Female

DRUGS (3)
  1. ROSUVASTATIN. [Suspect]
     Active Substance: ROSUVASTATIN
     Indication: HYPERLIPIDAEMIA
     Dosage: 40 MG DAILY FROM SEVERAL YEARS
     Route: 065
  2. PAZOPANIB [Interacting]
     Active Substance: PAZOPANIB
     Dosage: FURTHER DECREASED IN FIRST MONTH OF TREATMENT
     Route: 065
  3. PAZOPANIB [Interacting]
     Active Substance: PAZOPANIB
     Indication: METASTATIC RENAL CELL CARCINOMA
     Dosage: INITIALLY 600MG DAILY, THEN REDUCED BY 25%
     Route: 065

REACTIONS (7)
  - Blood thyroid stimulating hormone increased [Unknown]
  - Rhabdomyolysis [Recovered/Resolved]
  - Thrombocytopenia [Unknown]
  - Drug interaction [Recovered/Resolved]
  - Hypertensive crisis [Unknown]
  - Asthenia [Unknown]
  - Acute kidney injury [Recovered/Resolved]
